FAERS Safety Report 10272435 (Version 1)
Quarter: 2014Q2

REPORT INFORMATION
  Report Type: Spontaneous
  Country: US (occurrence: None)
  Receive Date: 20140630
  Receipt Date: 20140630
  Transmission Date: 20141212
  Serious: Yes (Disabling)
  Sender: FDA-Public Use
  Company Number: None

PATIENT
  Age: 55 Year
  Sex: Female
  Weight: 79.38 kg

DRUGS (1)
  1. OMEPRAZOLE 40 MG KREMERS URBAN [Suspect]
     Indication: DYSPEPSIA
     Dosage: 1 CAPSULE?1 X BEFORE SUPPER?TAKEN BY MOUTH
     Route: 048
     Dates: start: 20140522, end: 20140527

REACTIONS (1)
  - Tinnitus [None]
